FAERS Safety Report 13756618 (Version 3)
Quarter: 2018Q3

REPORT INFORMATION
  Report Type: Spontaneous
  Country: None (occurrence: US)
  Receive Date: 20170714
  Receipt Date: 20180705
  Transmission Date: 20181010
  Serious: Yes (Hospitalization)
  Sender: FDA-Public Use
  Company Number: US-AMAG PHARMACEUTICALS, INC.-AMAG201700344

PATIENT

DRUGS (1)
  1. FERAHEME [Suspect]
     Active Substance: FERUMOXYTOL NON-STOICHIOMETRIC MAGNETITE
     Indication: PRODUCT USED FOR UNKNOWN INDICATION
     Dosage: 510 MG, UNK

REACTIONS (6)
  - Flushing [Unknown]
  - Dyspnoea [Unknown]
  - Hyperhidrosis [Unknown]
  - Sneezing [Unknown]
  - Hypotension [Unknown]
  - Chest pain [Unknown]

NARRATIVE: CASE EVENT DATE: 20160407
